FAERS Safety Report 7004655-7 (Version None)
Quarter: 2010Q3

REPORT INFORMATION
  Report Type: 
  Country: None (occurrence: None)
  Receive Date: 20100921
  Receipt Date: 20100913
  Transmission Date: 20110219
  Serious: Yes (Hospitalization)
  Sender: FDA-Public Use
  Company Number: US-US-EMD SERONO, INC.-233897J09USA

PATIENT
  Sex: Female

DRUGS (5)
  1. REBIF [Suspect]
     Indication: MULTIPLE SCLEROSIS
     Route: 058
     Dates: start: 20090602, end: 20100801
  2. DILANTIN [Concomitant]
     Indication: CONVULSION
     Dates: start: 20080101, end: 20091201
  3. DILANTIN [Concomitant]
     Dates: start: 20091201
  4. XANAX [Concomitant]
     Indication: ANXIETY
     Dates: start: 20080101
  5. CYMBALTA [Concomitant]
     Indication: DEPRESSION
     Dates: start: 20080101

REACTIONS (10)
  - BLOOD GLUCOSE DECREASED [None]
  - CONVULSION [None]
  - DRUG LEVEL FLUCTUATING [None]
  - HEAD INJURY [None]
  - HEPATIC ENZYME INCREASED [None]
  - HYPERTENSION [None]
  - INFLUENZA LIKE ILLNESS [None]
  - INJECTION SITE REACTION [None]
  - MULTIPLE SCLEROSIS [None]
  - STRESS [None]
